FAERS Safety Report 9937846 (Version 3)
Quarter: 2014Q1

REPORT INFORMATION
  Report Type: Spontaneous
  Country: US (occurrence: US)
  Receive Date: 20140303
  Receipt Date: 20140325
  Transmission Date: 20141002
  Serious: Yes (Hospitalization)
  Sender: FDA-Public Use
  Company Number: US-BIOGENIDEC-2014BI016382

PATIENT
  Age: 64 Year
  Sex: Female

DRUGS (3)
  1. TECFIDERA [Suspect]
     Indication: MULTIPLE SCLEROSIS
     Route: 048
     Dates: start: 20130601
  2. TECFIDERA [Suspect]
     Indication: MULTIPLE SCLEROSIS
     Route: 048
     Dates: start: 201307
  3. AMPYRA [Concomitant]
     Indication: MULTIPLE SCLEROSIS

REACTIONS (4)
  - Cholecystitis [Recovered/Resolved]
  - Hypoaesthesia [Not Recovered/Not Resolved]
  - Sensation of heaviness [Not Recovered/Not Resolved]
  - Nausea [Recovered/Resolved]
